FAERS Safety Report 7554070-2 (Version None)
Quarter: 2011Q2

REPORT INFORMATION
  Report Type: 
  Country: None (occurrence: None)
  Receive Date: 20110610
  Receipt Date: 20110602
  Transmission Date: 20111010
  Serious: Yes (Other)
  Sender: FDA-Public Use
  Company Number: 1000021425

PATIENT
  Age: 76 Year
  Sex: Female

DRUGS (1)
  1. BYSTOLIC [Suspect]
     Indication: HYPERTENSION
     Dosage: 10 MG, 20 MG
     Dates: start: 20100101

REACTIONS (2)
  - BLOOD PRESSURE INCREASED [None]
  - MYALGIA [None]
